FAERS Safety Report 23750532 (Version 1)
Quarter: 2024Q2

REPORT INFORMATION
  Report Type: Spontaneous
  Country: JP (occurrence: JP)
  Receive Date: 20240417
  Receipt Date: 20240417
  Transmission Date: 20240716
  Serious: Yes (Other)
  Sender: FDA-Public Use
  Company Number: JP-TEYRO-2024-TY-000105

PATIENT
  Age: 67 Year
  Sex: Male

DRUGS (5)
  1. CARBOPLATIN [Suspect]
     Active Substance: CARBOPLATIN
     Indication: Small cell lung cancer
     Dosage: AREA UNDER THE CONCENTRATION-TIME CURVE = 5, 125 MG ON DAY 1
  2. CARBOPLATIN [Suspect]
     Active Substance: CARBOPLATIN
     Dosage: REDUCED DOSES
  3. DURVALUMAB [Suspect]
     Active Substance: DURVALUMAB
     Indication: Small cell lung cancer
     Dosage: 1500 MG/BODY ON DAY 1
  4. ETOPOSIDE [Suspect]
     Active Substance: ETOPOSIDE
     Indication: Small cell lung cancer
     Dosage: 50 MG/M^2 ON DAYS 1 AND 3
  5. ETOPOSIDE [Suspect]
     Active Substance: ETOPOSIDE
     Dosage: REDUCED DOSE

REACTIONS (5)
  - Therapy partial responder [Unknown]
  - Upper gastrointestinal haemorrhage [Unknown]
  - Neutropenia [Unknown]
  - Anaemia [Unknown]
  - Off label use [Unknown]
